FAERS Safety Report 7298214-9 (Version None)
Quarter: 2011Q1

REPORT INFORMATION
  Report Type: 
  Country: None (occurrence: None)
  Receive Date: 20110125
  Receipt Date: 20101222
  Transmission Date: 20110831
  Serious: Yes (Death)
  Sender: FDA-Public Use
  Company Number: 003-044

PATIENT

DRUGS (2)
  1. CROFAB [Suspect]
  2. CROFAB [Suspect]

REACTIONS (2)
  - INCORRECT DOSE ADMINISTERED [None]
  - MYOCARDIAL INFARCTION [None]
